FAERS Safety Report 20911114 (Version 1)
Quarter: 2022Q2

REPORT INFORMATION
  Report Type: Spontaneous
  Country: US (occurrence: US)
  Receive Date: 20220603
  Receipt Date: 20220603
  Transmission Date: 20220720
  Serious: No
  Sender: FDA-Public Use
  Company Number: US-GSKCCFUS-Case-01391170_AE-80220

PATIENT
  Sex: Female

DRUGS (2)
  1. TRELEGY ELLIPTA [Interacting]
     Active Substance: FLUTICASONE FUROATE\UMECLIDINIUM BROMIDE\VILANTEROL TRIFENATATE
     Indication: Product used for unknown indication
     Dosage: UNK
  2. IPRATROPIUM [Interacting]
     Active Substance: IPRATROPIUM
     Indication: Respiration abnormal
     Dosage: UNK

REACTIONS (2)
  - Labelled drug-drug interaction issue [Unknown]
  - Contraindicated product prescribed [Unknown]
